FAERS Safety Report 8363945-6 (Version None)
Quarter: 2012Q2

REPORT INFORMATION
  Report Type: 
  Country: None (occurrence: None)
  Receive Date: 20120516
  Receipt Date: 20120502
  Transmission Date: 20120825
  Serious: Yes (Other)
  Sender: FDA-Public Use
  Company Number: FR-FRI-1000030454

PATIENT
  Age: 47 Year
  Sex: Female

DRUGS (3)
  1. CITALOPRAM HYDROBROMIDE [Suspect]
     Dosage: 20 MG
     Route: 050
  2. LITHIUM CARBONATE [Concomitant]
     Dosage: UNKNOWN
  3. CITALOPRAM HYDROBROMIDE [Suspect]
     Dosage: 40 MG
     Route: 050

REACTIONS (2)
  - EXTRAPYRAMIDAL DISORDER [None]
  - PYRAMIDAL TRACT SYNDROME [None]
